FAERS Safety Report 5215578-8 (Version None)
Quarter: 2007Q1

REPORT INFORMATION
  Report Type: 
  Country: None (occurrence: None)
  Receive Date: 20070117
  Receipt Date: 20070111
  Transmission Date: 20070707
  Serious: Yes (Disabling, Other)
  Sender: FDA-Public Use
  Company Number: 2007AL000177

PATIENT
  Age: 36 Year
  Sex: Male

DRUGS (4)
  1. DIAZEPAM [Suspect]
     Dosage: 5 MG; HS
  2. ZOLOFT [Concomitant]
  3. BENZODIAZEPINES [Concomitant]
  4. SELECTIVE SEROTONIN RE-UPTAKE INHIBITOR (SSRI) [Concomitant]

REACTIONS (7)
  - DEAFNESS NEUROSENSORY [None]
  - LABYRINTHITIS [None]
  - NYSTAGMUS [None]
  - TINNITUS [None]
  - TYMPANIC MEMBRANE DISORDER [None]
  - VERTIGO [None]
  - VOMITING [None]
